FAERS Safety Report 9157015 (Version 1)
Quarter: 2013Q1

REPORT INFORMATION
  Report Type: Spontaneous
  Country: US (occurrence: US)
  Receive Date: 20130312
  Receipt Date: 20130312
  Transmission Date: 20140127
  Serious: Yes (Hospitalization)
  Sender: FDA-Public Use
  Company Number: US-BAYER-2013-028412

PATIENT
  Age: 46 Year
  Sex: Female
  Weight: 116.55 kg

DRUGS (22)
  1. YAZ [Suspect]
     Indication: MENOPAUSAL SYMPTOMS
  2. ADVAIR [Concomitant]
     Dosage: 250/40 1 BID
     Route: 045
  3. ATIVAN [Concomitant]
     Indication: SLEEP DISORDER
     Dosage: 1 MG, HS
     Route: 048
  4. CYMBALTA [Concomitant]
     Dosage: 60 MG, QHS
     Route: 048
  5. ALBUTEROL HFA [Concomitant]
     Dosage: 108 ?G,  2 PUFFS Q4H PRN
     Route: 045
  6. DARVOCET-N [Concomitant]
     Indication: PAIN
     Dosage: 100 MG, Q6H PRN
     Route: 048
  7. LASIX [FUROSEMIDE] [Concomitant]
     Dosage: 40 MG, QD
     Route: 048
  8. MIDRIN [Concomitant]
     Indication: HEADACHE
     Dosage: 325 MG-100 MG-65 MG 2 INITIALLY THEN 1 Q4HRS PRN
  9. PROTONIX [Concomitant]
     Dosage: 40 MG, UNK
     Route: 048
  10. PROVENTIL HFA [Concomitant]
     Dosage: 108 NG, 2 PUFFS Q4H
     Route: 045
  11. REQUIP [Concomitant]
     Dosage: 1 MG, HS
     Route: 048
  12. ROBAXIN [MACROGOL,METHOCARBAMOL] [Concomitant]
     Dosage: 750 MG, UNK
     Route: 048
  13. ELAVIL [Concomitant]
     Indication: SLEEP DISORDER
     Dosage: 25 MG 1/2 - 1 PO QHS PRN
  14. LOTRISONE [Concomitant]
     Dosage: 0.05%-1% APPLY BID PRN
     Route: 061
  15. PROZAC [Concomitant]
     Dosage: 40 MG, UNK
     Route: 048
  16. SYMBICORT [Concomitant]
     Dosage: 160/4.5 MCG 2 PUFFS BID
     Route: 045
  17. PRILOSEC [Concomitant]
  18. NITROGLYCERINE [Concomitant]
  19. AMITRIPTYLINE [Concomitant]
  20. ROBAXIN [METHOCARBAMOL] [Concomitant]
  21. DARVOCET [Concomitant]
  22. PROVENTIL [Concomitant]

REACTIONS (1)
  - Pulmonary embolism [Recovered/Resolved]
